FAERS Safety Report 7820528-1 (Version None)
Quarter: 2011Q4

REPORT INFORMATION
  Report Type: 
  Country: None (occurrence: None)
  Receive Date: 20111018
  Receipt Date: 20111005
  Transmission Date: 20120403
  Serious: Yes (Other)
  Sender: FDA-Public Use
  Company Number: PHHY2011JP88965

PATIENT
  Age: 32 Year
  Sex: Female

DRUGS (1)
  1. METHYLERGOMETRINE MALEATE [Suspect]
     Indication: POSTPARTUM HAEMORRHAGE
     Dosage: UNK UKN, UNK
     Route: 048

REACTIONS (1)
  - CEREBRAL VASOCONSTRICTION [None]
